FAERS Safety Report 4831311-3 (Version None)
Quarter: 2005Q4

REPORT INFORMATION
  Report Type: 
  Country: None (occurrence: None)
  Receive Date: 20051116
  Receipt Date: 20050915
  Transmission Date: 20060501
  Serious: Yes (Hospitalization)
  Sender: FDA-Public Use
  Company Number: 0509-471

PATIENT
  Age: 56 Year
  Sex: Female

DRUGS (4)
  1. ALBUTEROL SULATE [Suspect]
     Indication: ASTHMA
     Dosage: 4 TIMES DAILY
  2. PREVACID [Concomitant]
  3. LAVAQUIN [Concomitant]
  4. DECONAMINE SR (SUSTAINED RELIEF) [Concomitant]

REACTIONS (2)
  - DRUG INEFFECTIVE [None]
  - PHARMACEUTICAL PRODUCT COMPLAINT [None]
